FAERS Safety Report 8017771-8 (Version None)
Quarter: 2012Q1

REPORT INFORMATION
  Report Type: 
  Country: None (occurrence: None)
  Receive Date: 20120103
  Receipt Date: 20111227
  Transmission Date: 20120608
  Serious: Yes (Other)
  Sender: FDA-Public Use
  Company Number: US-PFIZER INC-2011314365

PATIENT
  Sex: Male

DRUGS (1)
  1. VIAGRA [Suspect]
     Indication: ERECTILE DYSFUNCTION
     Dosage: 50 MG, UNK
     Dates: start: 20111226, end: 20111227

REACTIONS (6)
  - DYSPNOEA [None]
  - VOMITING [None]
  - MALAISE [None]
  - DIZZINESS [None]
  - HEADACHE [None]
  - COLD SWEAT [None]
